FAERS Safety Report 4382879-5 (Version None)
Quarter: 2004Q2

REPORT INFORMATION
  Report Type: 
  Country: None (occurrence: None)
  Receive Date: 20040602
  Receipt Date: 20031001
  Transmission Date: 20050107
  Serious: Yes (Hospitalization)
  Sender: FDA-Public Use
  Company Number: NSADSS2002028895

PATIENT
  Age: 59 Year
  Sex: Female
  Weight: 68.0396 kg

DRUGS (8)
  1. PROPULSID [Suspect]
     Indication: IMPAIRED GASTRIC EMPTYING
     Dosage: 20 MG, 3 IN 1 DAY, ORAL
     Route: 048
     Dates: start: 19990121, end: 19990607
  2. PROPULSID [Suspect]
     Indication: IMPAIRED GASTRIC EMPTYING
     Dosage: 20 MG, 3 IN 1 DAY, ORAL
     Route: 048
     Dates: start: 19971117
  3. AMOXICILLIN [Concomitant]
  4. AMBIEN [Concomitant]
  5. PREVACID [Concomitant]
  6. BETAPACE [Concomitant]
  7. ESTRATEST [Concomitant]
  8. DEMADEX [Concomitant]

REACTIONS (3)
  - ABDOMINAL ADHESIONS [None]
  - PERICARDIAL EFFUSION [None]
  - SUPRAVENTRICULAR TACHYCARDIA [None]
